FAERS Safety Report 6476631-4 (Version None)
Quarter: 2009Q4

REPORT INFORMATION
  Report Type: 
  Country: None (occurrence: None)
  Receive Date: 20091204
  Receipt Date: 20091204
  Transmission Date: 20100525
  Serious: Yes (Life-Threatening, Hospitalization)
  Sender: FDA-Public Use
  Company Number: None

PATIENT
  Age: 61 Year
  Sex: Male
  Weight: 87 kg

DRUGS (1)
  1. IMMUNE GLOBULIN NOS [Suspect]
     Indication: HAEMOLYTIC ANAEMIA
     Dosage: 78 GM EVERY DAY IV
     Route: 042
     Dates: start: 20091130, end: 20091201

REACTIONS (2)
  - RENAL FAILURE ACUTE [None]
  - RENAL TUBULAR NECROSIS [None]
